FAERS Safety Report 13997382 (Version 3)
Quarter: 2019Q2

REPORT INFORMATION
  Report Type: Spontaneous
  Country: US (occurrence: US)
  Receive Date: 20170921
  Receipt Date: 20190510
  Transmission Date: 20190711
  Serious: Yes (Life-Threatening, Hospitalization, Other)
  Sender: FDA-Public Use
  Company Number: PHHY2017US138009

PATIENT
  Age: 63 Year
  Sex: Female

DRUGS (5)
  1. DOXORUBICIN [Suspect]
     Active Substance: DOXORUBICIN
     Indication: DIFFUSE LARGE B-CELL LYMPHOMA
     Route: 065
  2. PREDNISONE. [Suspect]
     Active Substance: PREDNISONE
     Indication: DIFFUSE LARGE B-CELL LYMPHOMA
     Route: 065
  3. RITUXIMAB. [Suspect]
     Active Substance: RITUXIMAB
     Indication: DIFFUSE LARGE B-CELL LYMPHOMA
     Dosage: UNK UNK, CYCLIC
     Route: 065
     Dates: start: 2008
  4. VINCRISTINE [Suspect]
     Active Substance: VINCRISTINE
     Indication: DIFFUSE LARGE B-CELL LYMPHOMA
     Dosage: UNK, CYCLIC
     Route: 065
     Dates: start: 2008
  5. CYCLOPHOSPHAMIDE. [Suspect]
     Active Substance: CYCLOPHOSPHAMIDE
     Indication: DIFFUSE LARGE B-CELL LYMPHOMA
     Dosage: UNK UNK, CYCLIC
     Route: 065
     Dates: start: 2008

REACTIONS (11)
  - Blast cells present [Unknown]
  - Lymphadenopathy [Unknown]
  - Dyspnoea [Unknown]
  - Blood uric acid increased [Unknown]
  - Acute biphenotypic leukaemia [Not Recovered/Not Resolved]
  - Platelet count decreased [Unknown]
  - Blast cell count increased [Unknown]
  - Asthenia [Unknown]
  - Haemoglobin decreased [Unknown]
  - Night sweats [Unknown]
  - T-cell type acute leukaemia [Unknown]

NARRATIVE: CASE EVENT DATE: 2012
